FAERS Safety Report 23627872 (Version 1)
Quarter: 2024Q1

REPORT INFORMATION
  Report Type: Report from Study
  Country: CA (occurrence: CA)
  Receive Date: 20240313
  Receipt Date: 20240313
  Transmission Date: 20240410
  Serious: Yes (Other)
  Sender: FDA-Public Use
  Company Number: CA-TEVA-VS-3167305

PATIENT
  Age: 51 Year
  Sex: Female

DRUGS (5)
  1. AJOVY [Suspect]
     Active Substance: FREMANEZUMAB-VFRM
     Indication: Migraine prophylaxis
     Route: 058
  2. TOPIRAMATE [Concomitant]
     Active Substance: TOPIRAMATE
     Route: 065
  3. UBRELVY [Concomitant]
     Active Substance: UBROGEPANT
     Indication: Migraine
     Route: 065
  4. QULIPTA [Concomitant]
     Active Substance: ATOGEPANT
     Indication: Migraine
     Route: 065
  5. BOTOX [Concomitant]
     Active Substance: ONABOTULINUMTOXINA
     Indication: Migraine
     Route: 065

REACTIONS (12)
  - Autoimmune disorder [Unknown]
  - Fall [Unknown]
  - Concussion [Unknown]
  - Gastric operation [Unknown]
  - Balance disorder [Unknown]
  - Head injury [Unknown]
  - Blood disorder [Unknown]
  - Thrombocytopenia [Unknown]
  - Constipation [Unknown]
  - Migraine [Unknown]
  - Haemorrhage [Unknown]
  - Thought blocking [Unknown]

NARRATIVE: CASE EVENT DATE: 20180101
